FAERS Safety Report 5527802-2 (Version None)
Quarter: 2007Q4

REPORT INFORMATION
  Report Type: 
  Country: None (occurrence: None)
  Receive Date: 20071128
  Receipt Date: 20071120
  Transmission Date: 20080405
  Serious: Yes (Hospitalization, Other)
  Sender: FDA-Public Use
  Company Number: A0695385A

PATIENT
  Sex: Female

DRUGS (3)
  1. ARIXTRA [Suspect]
     Indication: FACTOR V LEIDEN MUTATION
     Dosage: 7.5MG PER DAY
     Route: 058
     Dates: start: 20071001
  2. VICODIN [Concomitant]
  3. ANTIBIOTIC [Concomitant]

REACTIONS (4)
  - DYSPNOEA [None]
  - HAEMORRHAGE [None]
  - NAUSEA [None]
  - VOMITING [None]
